FAERS Safety Report 5663985-1 (Version None)
Quarter: 2008Q1

REPORT INFORMATION
  Report Type: 
  Country: None (occurrence: None)
  Receive Date: 20080314
  Receipt Date: 20080303
  Transmission Date: 20080703
  Serious: Yes (Hospitalization, Other)
  Sender: FDA-Public Use
  Company Number: US-WYE-H02904008

PATIENT
  Sex: Female

DRUGS (4)
  1. EFFEXOR XR [Suspect]
     Indication: DEPRESSION
     Route: 048
  2. DEPAKOTE [Concomitant]
     Indication: BIPOLAR DISORDER
     Dosage: UNKNOWN
     Route: 048
  3. DEPAKOTE [Concomitant]
     Indication: CONVULSION
  4. DEPAKOTE [Concomitant]
     Indication: MIGRAINE

REACTIONS (1)
  - COMA [None]
